FAERS Safety Report 24787549 (Version 1)
Quarter: 2024Q4

REPORT INFORMATION
  Report Type: Spontaneous
  Country: BE (occurrence: BE)
  Receive Date: 20241230
  Receipt Date: 20241230
  Transmission Date: 20250115
  Serious: Yes (Other)
  Sender: GLAXOSMITHKLINE
  Company Number: None

PATIENT

DRUGS (3)
  1. WELLBUTRIN [Suspect]
     Active Substance: BUPROPION HYDROCHLORIDE
     Indication: Product used for unknown indication
     Dosage: I WOULD STOP MID TO LATE JUNE 2025
     Route: 065
  2. CYMBALTA [Suspect]
     Active Substance: DULOXETINE HYDROCHLORIDE
     Indication: Product used for unknown indication
     Dosage: I WOULD STOP MID TO LATE JUNE 2025.
     Route: 065
  3. LITHIUM CARBONATE [Suspect]
     Active Substance: LITHIUM CARBONATE
     Indication: Product used for unknown indication
     Dosage: I WOULD STOP MID TO LATE JUNE 2025.
     Route: 065

REACTIONS (12)
  - Tremor [Unknown]
  - Syncope [Unknown]
  - Muscle contractions involuntary [Unknown]
  - Night sweats [Unknown]
  - Photosensitivity reaction [Unknown]
  - Pollakiuria [Unknown]
  - Weight increased [Unknown]
  - Thirst [Unknown]
  - Dry mouth [Unknown]
  - Irritability [Unknown]
  - Abnormal dreams [Unknown]
  - Paraesthesia [Unknown]
